FAERS Safety Report 14207083 (Version 3)
Quarter: 2018Q2

REPORT INFORMATION
  Report Type: Spontaneous
  Country: IT (occurrence: IT)
  Receive Date: 20171121
  Receipt Date: 20180410
  Transmission Date: 20180711
  Serious: Yes (Other)
  Sender: FDA-Public Use
  Company Number: IT-ACCORD-061203

PATIENT
  Age: 47 Year
  Sex: Male

DRUGS (1)
  1. QUETIAPINE. [Suspect]
     Active Substance: QUETIAPINE
     Dosage: STRENGTH: 10 MG, 8 DOSAGE FORM
     Route: 048
     Dates: start: 20170610, end: 20170610

REACTIONS (2)
  - Overdose [Unknown]
  - Drug abuse [Unknown]

NARRATIVE: CASE EVENT DATE: 20170611
